FAERS Safety Report 4685371-3 (Version None)
Quarter: 2005Q2

REPORT INFORMATION
  Report Type: 
  Country: None (occurrence: None)
  Receive Date: 20050608
  Receipt Date: 20050606
  Transmission Date: 20051028
  Serious: Yes (Hospitalization)
  Sender: FDA-Public Use
  Company Number: US-GLAXOSMITHKLINE-A0561378A

PATIENT
  Age: 64 Year
  Sex: Male

DRUGS (9)
  1. ADVAIR DISKUS 100/50 [Suspect]
     Indication: CHRONIC OBSTRUCTIVE PULMONARY DISEASE
     Dosage: 1PUFF TWICE PER DAY
     Route: 055
  2. SINGULAIR [Concomitant]
  3. BLOOD PRESSURE MEDICATION [Concomitant]
  4. DIABETES MEDICATION [Concomitant]
  5. UNKNOWN DIURETIC [Concomitant]
  6. PREDNISONE TAB [Concomitant]
  7. OXYGEN [Concomitant]
  8. INSULIN [Concomitant]
  9. GLIPIZIDE [Concomitant]

REACTIONS (2)
  - HYPOVENTILATION [None]
  - LUNG INFECTION [None]
